FAERS Safety Report 16530823 (Version 1)
Quarter: 2019Q3

REPORT INFORMATION
  Report Type: Spontaneous
  Country: US (occurrence: US)
  Receive Date: 20190523
  Receipt Date: 20190523
  Transmission Date: 20191004
  Serious: No
  Sender: FDA-Public Use
  Company Number: None

PATIENT
  Age: 56 Year
  Sex: Male

DRUGS (1)
  1. MAVYRET [Suspect]
     Active Substance: GLECAPREVIR\PIBRENTASVIR
     Dosage: APRIL 25 2019
     Route: 048
     Dates: start: 201904

REACTIONS (3)
  - Gastrooesophageal reflux disease [None]
  - Condition aggravated [None]
  - Productive cough [None]

NARRATIVE: CASE EVENT DATE: 20190523
